FAERS Safety Report 5169261-8 (Version None)
Quarter: 2006Q4

REPORT INFORMATION
  Report Type: 
  Country: None (occurrence: None)
  Receive Date: 20061127
  Receipt Date: 20061122
  Transmission Date: 20070319
  Serious: Yes (Other)
  Sender: FDA-Public Use
  Company Number: 231153

PATIENT
  Age: 16 Year
  Sex: Female
  Weight: 54 kg

DRUGS (2)
  1. XOLAIR [Suspect]
     Indication: ASTHMA
     Dosage: 375 MG, UNK, SUBCUTANEOUS
     Route: 058
     Dates: start: 20060712
  2. MEDICATION (UNK INGREDIENT) (GENERIC COMPONENT(S) NOT KNOWN) [Concomitant]

REACTIONS (12)
  - ASTHMA [None]
  - BRONCHITIS [None]
  - CHEST PAIN [None]
  - COUGH [None]
  - DIZZINESS [None]
  - EPISTAXIS [None]
  - HAEMOPTYSIS [None]
  - HYPOTENSION [None]
  - NASOPHARYNGITIS [None]
  - SYNCOPE [None]
  - TRACHEITIS [None]
  - VASCULAR RUPTURE [None]
